FAERS Safety Report 6020914-9 (Version None)
Quarter: 2008Q4

REPORT INFORMATION
  Report Type: 
  Country: None (occurrence: None)
  Receive Date: 20081229
  Receipt Date: 20081223
  Transmission Date: 20090506
  Serious: Yes (Life-Threatening)
  Sender: FDA-Public Use
  Company Number: NL-BAYER-200833292GPV

PATIENT
  Age: 48 Year
  Sex: Female

DRUGS (4)
  1. AVELOX [Suspect]
     Indication: ACUTE SINUSITIS
     Dosage: TOTAL DAILY DOSE: 400 MG  UNIT DOSE: 400 MG
     Route: 048
     Dates: start: 20081128, end: 20081130
  2. CELESTONE TAB [Interacting]
     Indication: ACUTE SINUSITIS
     Dosage: TOTAL DAILY DOSE: 0.5 MG  UNIT DOSE: 0.5 MG
     Route: 048
     Dates: start: 20081128
  3. PRIADEL [Interacting]
     Indication: DRUG USE FOR UNKNOWN INDICATION
     Dosage: TOTAL DAILY DOSE: 1200 MG  UNIT DOSE: 400 MG
     Route: 048
     Dates: start: 20080501
  4. METAMUCIL SUGARFREE LEMON / PSYLLIUM SEED [Concomitant]
     Indication: DRUG USE FOR UNKNOWN INDICATION
     Dosage: TOTAL DAILY DOSE: 3.4 G  UNIT DOSE: 3.4 G
     Route: 065
     Dates: start: 20000101

REACTIONS (5)
  - ANTIPSYCHOTIC DRUG LEVEL INCREASED [None]
  - ANXIETY [None]
  - HYPERHIDROSIS [None]
  - MALAISE [None]
  - POTENTIATING DRUG INTERACTION [None]
